FAERS Safety Report 9331381 (Version 1)
Quarter: 2013Q2

REPORT INFORMATION
  Report Type: Spontaneous
  Country: GB (occurrence: GB)
  Receive Date: 20130605
  Receipt Date: 20130605
  Transmission Date: 20140414
  Serious: Yes (Hospitalization, Other)
  Sender: FDA-Public Use
  Company Number: GB-JNJFOC-20130521999

PATIENT
  Age: 79 Year
  Sex: Female
  Weight: 59 kg

DRUGS (12)
  1. XARELTO [Suspect]
     Indication: DEEP VEIN THROMBOSIS
     Route: 048
     Dates: start: 20121210, end: 20130102
  2. FOLIC ACID [Concomitant]
     Route: 065
  3. PARACETAMOL [Concomitant]
     Route: 048
  4. SIMVASTATIN [Concomitant]
     Route: 065
  5. MORPHINE SULPHATE [Concomitant]
     Route: 065
  6. OMEPRAZOLE [Concomitant]
     Route: 065
  7. PREDNISOLONE [Concomitant]
     Route: 065
  8. MESALAZINE [Concomitant]
     Route: 065
  9. FLUOXETINE [Concomitant]
     Route: 065
  10. BISOPROLOL [Concomitant]
     Route: 065
  11. GABAPENTIN [Concomitant]
     Route: 065
  12. LORAZEPAM [Concomitant]
     Route: 065

REACTIONS (1)
  - Pulmonary embolism [Recovered/Resolved]
